FAERS Safety Report 10092648 (Version 1)
Quarter: 2014Q2

REPORT INFORMATION
  Report Type: Spontaneous
  Country: US (occurrence: US)
  Receive Date: 20140421
  Receipt Date: 20140421
  Transmission Date: 20141212
  Serious: No
  Sender: FDA-Public Use
  Company Number: US-SANOFI-AVENTIS-2013SA062155

PATIENT
  Age: 70 Year
  Sex: Male

DRUGS (1)
  1. ALLEGRA 24 HOUR [Suspect]
     Indication: HYPERSENSITIVITY
     Dosage: TAKEN FROM:~1 WEEK
     Route: 048
     Dates: end: 20130612

REACTIONS (1)
  - Pruritus [Recovered/Resolved]
